FAERS Safety Report 7975257-0 (Version None)
Quarter: 2011Q4

REPORT INFORMATION
  Report Type: 
  Country: None (occurrence: None)
  Receive Date: 20111213
  Receipt Date: 20110923
  Transmission Date: 20120403
  Serious: No
  Sender: FDA-Public Use
  Company Number: US-AMGEN-USASP2011049271

PATIENT
  Age: 68 Year
  Sex: Female

DRUGS (1)
  1. ENBREL [Suspect]
     Indication: RHEUMATOID ARTHRITIS
     Dosage: 50 MG, QWK
     Dates: start: 20070601

REACTIONS (7)
  - OPEN WOUND [None]
  - INJURY [None]
  - FRACTURE [None]
  - PAIN IN EXTREMITY [None]
  - JOINT SWELLING [None]
  - PURULENCE [None]
  - FALL [None]
